FAERS Safety Report 19778233 (Version 1)
Quarter: 2021Q3

REPORT INFORMATION
  Report Type: Spontaneous
  Country: US (occurrence: US)
  Receive Date: 20210831
  Receipt Date: 20210831
  Transmission Date: 20211014
  Serious: No
  Sender: FDA-Public Use
  Company Number: None

PATIENT
  Sex: Female
  Weight: 110.68 kg

DRUGS (1)
  1. IMATINIB MESYLATE 400MG TEVA PHARAMACEUTICALS USA [Suspect]
     Active Substance: IMATINIB MESYLATE
     Indication: GASTROINTESTINAL STROMAL TUMOUR
     Dosage: ?          OTHER DOSE:1 TAB;?
     Route: 048
     Dates: start: 20210127

REACTIONS (3)
  - Diarrhoea [None]
  - Fluid retention [None]
  - Haemoglobin decreased [None]
